FAERS Safety Report 19847469 (Version 4)
Quarter: 2022Q1

REPORT INFORMATION
  Report Type: Spontaneous
  Country: US (occurrence: US)
  Receive Date: 20210917
  Receipt Date: 20220321
  Transmission Date: 20220424
  Serious: No
  Sender: FDA-Public Use
  Company Number: US-PFIZER INC-2021751011

PATIENT
  Age: 83 Year
  Sex: Female
  Weight: 71.67 kg

DRUGS (1)
  1. TIKOSYN [Suspect]
     Active Substance: DOFETILIDE
     Indication: Exeresis
     Dosage: 375 UG, 2X/DAY (250UG, CAPSULE, BY MOUTH, TWICE DAILY; 150UG, CAPSULE, BY MOUTH, TWICE DAILY)
     Route: 048
     Dates: start: 2017

REACTIONS (2)
  - Sciatica [Unknown]
  - Off label use [Unknown]

NARRATIVE: CASE EVENT DATE: 20170101
